FAERS Safety Report 10358748 (Version 1)
Quarter: 2014Q3

REPORT INFORMATION
  Report Type: Spontaneous
  Country: ES (occurrence: ES)
  Receive Date: 20140804
  Receipt Date: 20140804
  Transmission Date: 20150326
  Serious: Yes (Hospitalization)
  Sender: FDA-Public Use
  Company Number: ES-UCBSA-2014007015

PATIENT
  Age: 79 Year
  Sex: Male

DRUGS (10)
  1. FLUMIL [Concomitant]
     Active Substance: ACETYLCYSTEINE
     Dosage: UNK, 100 MG/ML
     Route: 048
  2. PARIET [Concomitant]
     Active Substance: RABEPRAZOLE SODIUM
     Dosage: 20 MG, ONCE DAILY (QD)
     Route: 048
  3. DIGOXINA [Concomitant]
     Active Substance: DIGOXIN
     Indication: CARDIAC FAILURE CONGESTIVE
     Dosage: 1 G, 3X/DAY (TID)
     Route: 048
  4. SEGURIL [Concomitant]
     Active Substance: FUROSEMIDE
     Dosage: 20 MG, ONCE DAILY (QD)
     Route: 048
  5. STALEVO [Concomitant]
     Active Substance: CARBIDOPA\ENTACAPONE\LEVODOPA
     Indication: PARKINSON^S DISEASE
     Dosage: 150 MG/37.5 MG/200 MG
     Route: 048
  6. NEUPRO [Suspect]
     Active Substance: ROTIGOTINE
     Indication: PARKINSON^S DISEASE
     Dosage: 12 MG, ONCE DAILY (QD), 8 MG/ 24 HOURS PATCH
     Route: 062
     Dates: end: 201011
  7. AZILECT [Concomitant]
     Active Substance: RASAGILINE MESYLATE
     Indication: PARKINSON^S DISEASE
     Dosage: 1 MG, ONCE DAILY (QD)
     Route: 048
  8. NEUPRO [Suspect]
     Active Substance: ROTIGOTINE
     Dosage: 14 MG, ONCE DAILY (QD), 8 MG/ 24 HOURS PATCH
     Route: 062
     Dates: start: 201011, end: 20101201
  9. GELOCATIL [Concomitant]
     Dosage: 1 G, 3X/DAY (TID)
     Route: 048
  10. COROPRES [Concomitant]
     Active Substance: CARVEDILOL
     Dosage: 6.25 MG, 2X/DAY (BID)
     Route: 048

REACTIONS (2)
  - Hallucination, visual [Recovered/Resolved]
  - Conduct disorder [Recovered/Resolved]

NARRATIVE: CASE EVENT DATE: 201011
